FAERS Safety Report 5390750-5 (Version None)
Quarter: 2007Q3

REPORT INFORMATION
  Report Type: 
  Country: None (occurrence: None)
  Receive Date: 20070718
  Receipt Date: 20070705
  Transmission Date: 20080115
  Serious: Yes (Hospitalization, Other)
  Sender: FDA-Public Use
  Company Number: US-ELI_LILLY_AND_COMPANY-US200707001537

PATIENT
  Age: 80 Year
  Sex: Female

DRUGS (2)
  1. FORTEO [Suspect]
     Indication: OSTEOPOROSIS
     Dates: start: 20070201
  2. FORTEO [Suspect]
     Dosage: UNK D/F, UNK

REACTIONS (10)
  - ASTHENIA [None]
  - BACK PAIN [None]
  - BONE PAIN [None]
  - FALL [None]
  - HEADACHE [None]
  - MUSCLE SPASMS [None]
  - MUSCULOSKELETAL PAIN [None]
  - NECK PAIN [None]
  - PELVIC FRACTURE [None]
  - SENSORY DISTURBANCE [None]
